FAERS Safety Report 18270647 (Version 3)
Quarter: 2020Q3

REPORT INFORMATION
  Report Type: Spontaneous
  Country: US (occurrence: US)
  Receive Date: 20200915
  Receipt Date: 20200929
  Transmission Date: 20201103
  Serious: Yes (Hospitalization)
  Sender: FDA-Public Use
  Company Number: US-TEVA-2020-US-1827428

PATIENT
  Age: 2 Year
  Sex: Male

DRUGS (1)
  1. PREDNISOLONE. [Suspect]
     Active Substance: PREDNISOLONE
     Indication: EPILEPSY
     Dosage: 54 MILLIGRAM DAILY; THREE TIMES A DAY (3.75 MG/KG/DAY).
     Route: 048

REACTIONS (1)
  - Sinus bradycardia [Recovered/Resolved]
